FAERS Safety Report 18676064 (Version 1)
Quarter: 2020Q4

REPORT INFORMATION
  Report Type: Report from Study
  Country: FR (occurrence: FR)
  Receive Date: 20201229
  Receipt Date: 20201229
  Transmission Date: 20210114
  Serious: Yes (Other)
  Sender: FDA-Public Use
  Company Number: FR-PFIZER INC-2020508247

PATIENT
  Sex: Male

DRUGS (5)
  1. ERLOTINIB [Concomitant]
     Active Substance: ERLOTINIB
     Dosage: 100 MG, 1X/DAY
  2. CRIZOTINIB [Suspect]
     Active Substance: CRIZOTINIB
     Indication: LUNG ADENOCARCINOMA
     Dosage: 250 MG, 2X/DAY
  3. ERLOTINIB [Concomitant]
     Active Substance: ERLOTINIB
     Indication: LUNG ADENOCARCINOMA
     Dosage: UNK, CYCLIC
  4. ERLOTINIB [Concomitant]
     Active Substance: ERLOTINIB
     Dosage: 150 MG, 1X/DAY
  5. NIVOLUMAB [Concomitant]
     Active Substance: NIVOLUMAB
     Indication: LUNG ADENOCARCINOMA
     Dosage: UNK, CYCLIC

REACTIONS (1)
  - Hyperthyroidism [Unknown]
